FAERS Safety Report 4973167-4 (Version None)
Quarter: 2006Q2

REPORT INFORMATION
  Report Type: 
  Country: None (occurrence: None)
  Receive Date: 20060414
  Receipt Date: 20051006
  Transmission Date: 20061013
  Serious: Yes (Hospitalization)
  Sender: FDA-Public Use
  Company Number: US-MERCK-0510USA05616

PATIENT
  Age: 65 Year
  Sex: Male
  Weight: 82 kg

DRUGS (1)
  1. VIOXX [Suspect]
     Indication: PAIN MANAGEMENT
     Route: 048
     Dates: start: 20001019, end: 20010219

REACTIONS (15)
  - ARTERIAL DISORDER [None]
  - ARTERIOSCLEROSIS [None]
  - BACK PAIN [None]
  - CAROTID ENDARTERECTOMY [None]
  - CEREBRAL ISCHAEMIA [None]
  - CONTUSION [None]
  - GASTROOESOPHAGEAL REFLUX DISEASE [None]
  - HYPERTENSIVE NEPHROPATHY [None]
  - ISCHAEMIC STROKE [None]
  - MYOCARDIAL INFARCTION [None]
  - OESOPHAGITIS [None]
  - RENAL ARTERY ARTERIOSCLEROSIS [None]
  - SKIN LACERATION [None]
  - SPINAL COLUMN STENOSIS [None]
  - TRANSIENT ISCHAEMIC ATTACK [None]
